FAERS Safety Report 6172483-0 (Version None)
Quarter: 2009Q2

REPORT INFORMATION
  Report Type: 
  Country: None (occurrence: None)
  Receive Date: 20090429
  Receipt Date: 20090422
  Transmission Date: 20091009
  Serious: Yes (Death)
  Sender: FDA-Public Use
  Company Number: NL-CELGENEUS-114-50794-09041990

PATIENT
  Sex: Male
  Weight: 69 kg

DRUGS (4)
  1. VIDAZA [Suspect]
     Route: 058
     Dates: start: 20090202, end: 20090207
  2. VIDAZA [Suspect]
     Route: 058
     Dates: start: 20090302, end: 20090307
  3. CIPROFLOXACIN HCL [Concomitant]
     Indication: PANCYTOPENIA
     Route: 065
     Dates: start: 20081101
  4. VORICONAZOLE [Concomitant]
     Indication: ASPERGILLOSIS
     Route: 065
     Dates: start: 20080801

REACTIONS (2)
  - ACUTE MYELOID LEUKAEMIA [None]
  - RECTAL CANCER [None]
